FAERS Safety Report 22234223 (Version 1)
Quarter: 2023Q2

REPORT INFORMATION
  Report Type: Spontaneous
  Country: FR (occurrence: FR)
  Receive Date: 20230420
  Receipt Date: 20230420
  Transmission Date: 20230722
  Serious: Yes (Other)
  Sender: FDA-Public Use
  Company Number: FR-MYLANLABS-2023M1041693

PATIENT
  Age: 58 Year
  Sex: Female

DRUGS (8)
  1. FULVESTRANT [Suspect]
     Active Substance: FULVESTRANT
     Indication: Adenocarcinoma
     Dosage: UNK
     Route: 065
     Dates: start: 202006
  2. FULVESTRANT [Suspect]
     Active Substance: FULVESTRANT
     Indication: Skin cancer
  3. CARBOPLATIN [Suspect]
     Active Substance: CARBOPLATIN
     Indication: Adenocarcinoma
     Dosage: UNK
     Route: 065
     Dates: start: 202009
  4. CARBOPLATIN [Suspect]
     Active Substance: CARBOPLATIN
     Indication: Skin cancer
  5. PALBOCICLIB [Suspect]
     Active Substance: PALBOCICLIB
     Indication: Adenocarcinoma
     Dosage: UNK
     Route: 065
     Dates: start: 202006
  6. PALBOCICLIB [Suspect]
     Active Substance: PALBOCICLIB
     Indication: Skin cancer
  7. TAXOL [Suspect]
     Active Substance: PACLITAXEL
     Indication: Adenocarcinoma
     Dosage: UNK
     Route: 065
     Dates: start: 202009
  8. TAXOL [Suspect]
     Active Substance: PACLITAXEL
     Indication: Skin cancer

REACTIONS (2)
  - Drug ineffective [Unknown]
  - Disease progression [Unknown]

NARRATIVE: CASE EVENT DATE: 20200101
